FAERS Safety Report 9703781 (Version 3)
Quarter: 2013Q4

REPORT INFORMATION
  Report Type: Spontaneous
  Country: BR (occurrence: BR)
  Receive Date: 20131122
  Receipt Date: 20131127
  Transmission Date: 20140711
  Serious: Yes (Other)
  Sender: FDA-Public Use
  Company Number: BR-JNJFOC-20120801786

PATIENT
  Sex: Female

DRUGS (4)
  1. STELARA [Suspect]
     Indication: PSORIASIS
     Route: 058
     Dates: start: 20110120, end: 201305
  2. LOSARTAN [Concomitant]
     Route: 065
  3. ATORVASTATIN [Concomitant]
     Route: 065
  4. GLIMEPIRIDE [Concomitant]
     Route: 065

REACTIONS (7)
  - Otitis externa [Not Recovered/Not Resolved]
  - Anal fistula [Recovered/Resolved]
  - Anal abscess [Recovered/Resolved]
  - Cough [Not Recovered/Not Resolved]
  - Viral infection [Not Recovered/Not Resolved]
  - Fatigue [Not Recovered/Not Resolved]
  - Psoriasis [Not Recovered/Not Resolved]
